FAERS Safety Report 5637482-3 (Version None)
Quarter: 2008Q1

REPORT INFORMATION
  Report Type: 
  Country: None (occurrence: None)
  Receive Date: 20080219
  Receipt Date: 20080212
  Transmission Date: 20080703
  Serious: Yes (Death)
  Sender: FDA-Public Use
  Company Number: 163-20785-08011325

PATIENT
  Age: 68 Year
  Sex: Female

DRUGS (2)
  1. THALOMID [Suspect]
     Indication: MULTIPLE MYELOMA
     Dosage: 50 MG, 1 IN 1 D, ORAL : 100 MG, 2 IN 1 D, ORAL
     Route: 048
     Dates: start: 20070201, end: 20070201
  2. THALOMID [Suspect]
     Indication: MULTIPLE MYELOMA
     Dosage: 50 MG, 1 IN 1 D, ORAL : 100 MG, 2 IN 1 D, ORAL
     Route: 048
     Dates: start: 20070306, end: 20080101

REACTIONS (1)
  - LUNG NEOPLASM MALIGNANT [None]
